FAERS Safety Report 7785389-8 (Version None)
Quarter: 2011Q3

REPORT INFORMATION
  Report Type: 
  Country: None (occurrence: None)
  Receive Date: 20110929
  Receipt Date: 20110920
  Transmission Date: 20111222
  Serious: Yes (Other)
  Sender: FDA-Public Use
  Company Number: US-GENZYME-CERZ-1002102

PATIENT
  Sex: Male
  Weight: 104.5 kg

DRUGS (6)
  1. CEREZYME [Suspect]
     Dosage: 57 U/KG, Q2W
     Route: 042
  2. VELAGLUCERASE ALFA [Concomitant]
     Indication: GAUCHER'S DISEASE
     Dosage: UNK
     Route: 065
     Dates: start: 20100601, end: 20101201
  3. TRAMADOL [Concomitant]
     Indication: PRODUCT USED FOR UNKNOWN INDICATION
     Dosage: 50 MG, PRN
     Route: 065
  4. CEREZYME [Suspect]
     Indication: GAUCHER'S DISEASE
     Dosage: 32 U/KG, QW
     Route: 042
     Dates: start: 19910101
  5. TERAZOSIN HCL [Concomitant]
     Indication: HYPERTENSION
     Dosage: 4 MG, QD
     Route: 065
  6. ENALAPRIL MALEATE [Concomitant]
     Indication: HYPERTENSION
     Dosage: 5 MG, QD
     Route: 065

REACTIONS (2)
  - PLASMACYTOMA [None]
  - SPINAL COMPRESSION FRACTURE [None]
